FAERS Safety Report 8809961 (Version 1)
Quarter: 2012Q4

REPORT INFORMATION
  Report Type: 
  Country: US (occurrence: US)
  Receive Date: 20120926
  Receipt Date: 20120926
  Transmission Date: 20130627
  Serious: Yes (Other)
  Sender: FDA-Public Use
  Company Number: US-009507513-2012SP016155

PATIENT
  Sex: Female

DRUGS (4)
  1. PEG-INTRON [Suspect]
     Indication: HEPATITIS C
     Dosage: redipen
     Route: 065
     Dates: start: 20110201, end: 20110831
  2. PEG-INTRON [Suspect]
     Dosage: redipen
     Route: 065
     Dates: start: 20120323
  3. REBETOL [Suspect]
     Indication: HEPATITIS C
     Dosage: UNK UNK, Unknown
     Route: 065
     Dates: start: 20110201, end: 20110831
  4. REBETOL [Suspect]
     Dosage: UNK UNK, Unknown
     Route: 065
     Dates: start: 20120323

REACTIONS (10)
  - Red blood cell count decreased [Unknown]
  - Liver disorder [Unknown]
  - Disease recurrence [Unknown]
  - Confusional state [Unknown]
  - Memory impairment [Unknown]
  - White blood cell count decreased [Unknown]
  - Disturbance in attention [Unknown]
  - Drug ineffective [Unknown]
  - Red blood cell count decreased [Unknown]
  - White blood cell count decreased [Unknown]
